FAERS Safety Report 8022117-5 (Version None)
Quarter: 2012Q1

REPORT INFORMATION
  Report Type: 
  Country: None (occurrence: None)
  Receive Date: 20120104
  Receipt Date: 20111118
  Transmission Date: 20120608
  Serious: Yes (Hospitalization)
  Sender: FDA-Public Use
  Company Number: US-BAYER-2011-081823

PATIENT
  Age: 75 Year
  Sex: Male
  Weight: 117.91 kg

DRUGS (5)
  1. ALEVE (CAPLET) [Suspect]
     Indication: ARTHRALGIA
     Dosage: PACKAGE SIZE 100CT
     Route: 048
     Dates: start: 20110601, end: 20110909
  2. ALEVE (CAPLET) [Suspect]
     Dosage: CONSUMER TOOK 2 CAPLETS IN THE MORNING AND AFTER LUNCH TIME AND 1 AT BEDTIME.
     Route: 048
     Dates: end: 20110909
  3. ATENOLOL [Concomitant]
  4. LANTUS [Concomitant]
  5. STEROID ANTIBACTERIALS [Concomitant]

REACTIONS (6)
  - ARTHRALGIA [None]
  - GASTRIC HAEMORRHAGE [None]
  - URINARY TRACT INFECTION [None]
  - BLOOD POTASSIUM INCREASED [None]
  - RENAL FAILURE CHRONIC [None]
  - WEIGHT DECREASED [None]
